FAERS Safety Report 13992799 (Version 1)
Quarter: 2017Q3

REPORT INFORMATION
  Report Type: Spontaneous
  Country: US (occurrence: US)
  Receive Date: 20170920
  Receipt Date: 20170920
  Transmission Date: 20171128
  Serious: No
  Sender: FDA-Public Use
  Company Number: US-RECKITT BENCKISER HEALTHCARE INT LIMITED-RB-93426-2016

PATIENT
  Age: 85 Year
  Sex: Female

DRUGS (1)
  1. MUCINEX [Suspect]
     Active Substance: GUAIFENESIN
     Indication: PRODUCT USED FOR UNKNOWN INDICATION
     Dosage: 600 MG, BID, 1 TABLET EVERY 12 HOURS.
     Route: 065
     Dates: start: 201611, end: 201611

REACTIONS (1)
  - Rhinorrhoea [Unknown]

NARRATIVE: CASE EVENT DATE: 201611
